FAERS Safety Report 10887112 (Version 2)
Quarter: 2015Q2

REPORT INFORMATION
  Report Type: Spontaneous
  Country: SE (occurrence: SE)
  Receive Date: 20150304
  Receipt Date: 20150424
  Transmission Date: 20150821
  Serious: Yes (Hospitalization, Other)
  Sender: FDA-Public Use
  Company Number: SE-PFIZER INC-2015079867

PATIENT
  Age: 86 Year
  Sex: Female

DRUGS (6)
  1. MIRTAZAPINE. [Concomitant]
     Active Substance: MIRTAZAPINE
     Dosage: 15 MG, 1X/DAY
  2. STILNOCT [Concomitant]
     Active Substance: ZOLPIDEM TARTRATE
     Dosage: 10 MG, 1X/DAY (AT NIGHT)
  3. XANOR [Suspect]
     Active Substance: ALPRAZOLAM
     Indication: ANXIETY
     Dosage: 5 MG, DAILY (5 TABLETS OF 1 MG )
  4. XANOR [Suspect]
     Active Substance: ALPRAZOLAM
     Dosage: 3 MG, DAILY (3 TABLETS OF 1 MG)
  5. SERTRALINE [Concomitant]
     Active Substance: SERTRALINE HYDROCHLORIDE
     Dosage: 100 MG, 1X/DAY
  6. XANOR [Suspect]
     Active Substance: ALPRAZOLAM
     Dosage: 1.5 MG, DAILY (3 TABLETS OF 0.5 MG)
     Dates: start: 20150206

REACTIONS (2)
  - Head injury [Unknown]
  - Epilepsy [Unknown]

NARRATIVE: CASE EVENT DATE: 20150207
